FAERS Safety Report 10853498 (Version 1)
Quarter: 2015Q1

REPORT INFORMATION
  Report Type: Spontaneous
  Country: US (occurrence: None)
  Receive Date: 20150218
  Receipt Date: 20150218
  Transmission Date: 20150721
  Serious: Yes (Other)
  Sender: FDA-Public Use
  Company Number: None

PATIENT
  Age: 46 Year
  Sex: Female
  Weight: 51.26 kg

DRUGS (1)
  1. SCOPOLAMINE TRANSDERMAL PATCH [Suspect]
     Active Substance: SCOPOLAMINE
     Indication: SURGERY

REACTIONS (4)
  - Vision blurred [None]
  - Eyelid oedema [None]
  - Eye swelling [None]
  - Swelling face [None]

NARRATIVE: CASE EVENT DATE: 20150128
